FAERS Safety Report 8622279-2 (Version None)
Quarter: 2012Q3

REPORT INFORMATION
  Report Type: 
  Country: None (occurrence: None)
  Receive Date: 20120827
  Receipt Date: 20120817
  Transmission Date: 20120928
  Serious: Yes (Hospitalization, Other)
  Sender: FDA-Public Use
  Company Number: US-BIOGENIDEC-2012BI009217

PATIENT
  Age: 49 Year
  Sex: Male
  Weight: 65 kg

DRUGS (57)
  1. GLUTOSE [Concomitant]
     Route: 048
  2. FAMOTIDINE [Concomitant]
     Route: 048
  3. HYDRALAZINE HCL [Concomitant]
     Route: 042
  4. PROMETHAZINE [Concomitant]
     Route: 048
  5. SODIUM CHLORIDE [Concomitant]
     Route: 045
  6. MIRTAZAPINE [Concomitant]
     Route: 048
  7. TIZANIDINE HYDROCHLORIDE [Concomitant]
     Route: 048
  8. POLYETHYLENE GLYCOL [Concomitant]
     Route: 048
  9. CALCIUM [Concomitant]
     Route: 048
  10. ONDANSETRON [Concomitant]
     Route: 048
  11. LIDOCAINE 1% [Concomitant]
  12. BACLOFEN [Concomitant]
     Indication: MUSCLE SPASTICITY
     Route: 048
     Dates: end: 20120401
  13. BACLOFEN [Concomitant]
     Indication: PAIN
     Route: 048
     Dates: end: 20120401
  14. SODIUM CHLORIDE [Concomitant]
     Route: 042
  15. FISH OIL [Concomitant]
  16. VITAMIN B COMPLEX CAP [Concomitant]
     Route: 048
  17. TYSABRI [Suspect]
     Indication: MULTIPLE SCLEROSIS
     Route: 042
     Dates: start: 20080408, end: 20120221
  18. METHYLPHENIDATE [Concomitant]
     Route: 048
  19. MORPHINE [Concomitant]
     Indication: HEADACHE
     Route: 042
  20. AMLODIPINE [Concomitant]
     Indication: HYPERTENSION
     Route: 048
  21. DEXTROSE 50% [Concomitant]
     Route: 042
  22. PREGABALIN [Concomitant]
     Route: 048
  23. TAMSULOSIN HCL [Concomitant]
     Indication: URINARY RETENTION
     Route: 048
  24. GINKOBA BILOBA [Concomitant]
     Route: 048
  25. NALOXONE [Concomitant]
  26. NORCO [Concomitant]
     Route: 048
  27. BISACODYL [Concomitant]
     Route: 054
  28. TRIMETHOBENZAMIDE HCL [Concomitant]
     Route: 030
  29. ONDANSETRON [Concomitant]
     Route: 042
  30. BACLOFEN [Concomitant]
     Route: 048
     Dates: start: 20120708
  31. FAMOTIDINE [Concomitant]
     Route: 042
  32. MAGNESIUM HYDROXIDE TAB [Concomitant]
     Route: 048
  33. ENOXAPARIN [Concomitant]
     Indication: THROMBOSIS PROPHYLAXIS
     Route: 058
  34. MULTI-VITAMIN [Concomitant]
     Route: 048
  35. SUDAFED 12 HOUR [Concomitant]
     Indication: GENERAL SYMPTOM
     Route: 048
  36. NORCO [Concomitant]
     Indication: HEADACHE
     Route: 048
  37. SERTRALINE HYDROCHLORIDE [Concomitant]
     Route: 048
  38. TEGRETOL [Concomitant]
     Indication: CONVULSION
     Route: 048
  39. DOCUSATE SODIUM [Concomitant]
     Route: 048
  40. DIPHENHYDRAMINE HYDROCHLORIDE [Concomitant]
     Indication: HYPERSENSITIVITY
     Route: 042
  41. ACETAMINOPHEN [Concomitant]
  42. COQ10 [Concomitant]
     Route: 048
  43. NICODERM CQ [Concomitant]
     Route: 062
  44. MORPHINE [Concomitant]
     Indication: PAIN
     Route: 042
  45. ZOLPIDEM [Concomitant]
     Route: 048
  46. GINSENG [Concomitant]
     Route: 048
  47. IBUPROFEN [Concomitant]
     Indication: PAIN
     Route: 048
  48. MAGNESIUM ASPARTATE [Concomitant]
     Route: 048
  49. POTASSIUM CHLORIDE [Concomitant]
     Indication: ELECTROLYTE SUBSTITUTION THERAPY
     Route: 048
  50. NORCO [Concomitant]
     Indication: PAIN
     Route: 048
  51. NORCO [Concomitant]
     Route: 048
  52. METOCLOPRAMIDE [Concomitant]
     Route: 048
  53. MORPHINE [Concomitant]
     Indication: FACIAL PAIN
     Route: 042
  54. BACLOFEN [Concomitant]
     Route: 048
     Dates: start: 20120708
  55. AMANTADINE HCL [Concomitant]
     Route: 048
  56. FENTANYL [Concomitant]
     Indication: PAIN
     Route: 042
  57. TORADOL [Concomitant]
     Dates: start: 20120301

REACTIONS (5)
  - SINUSITIS [None]
  - IMMUNE RECONSTITUTION SYNDROME [None]
  - THALAMIC INFARCTION [None]
  - CRYPTOCOCCAL FUNGAEMIA [None]
  - MENINGITIS CRYPTOCOCCAL [None]
